FAERS Safety Report 21625627 (Version 1)
Quarter: 2022Q4

REPORT INFORMATION
  Report Type: Spontaneous
  Country: US (occurrence: None)
  Receive Date: 20221122
  Receipt Date: 20221122
  Transmission Date: 20230112
  Serious: No
  Sender: FDA-Public Use
  Company Number: US-ROCHE-3035257

PATIENT
  Sex: Female

DRUGS (5)
  1. HERCEPTIN [Suspect]
     Active Substance: TRASTUZUMAB
     Indication: Neoplasm malignant
     Dosage: HERCEPTIN
     Route: 042
     Dates: start: 2015, end: 2016
  2. HERCEPTIN [Suspect]
     Active Substance: TRASTUZUMAB
     Dosage: TAXOL/HERCEPTIN
     Route: 042
     Dates: start: 2015, end: 2016
  3. ADRIAMYCIN [Concomitant]
     Active Substance: DOXORUBICIN HYDROCHLORIDE
     Indication: Breast cancer metastatic
     Dates: start: 201506, end: 201511
  4. CYTOXAN [Concomitant]
     Active Substance: CYCLOPHOSPHAMIDE
     Indication: Breast cancer metastatic
     Dates: start: 201506, end: 201511
  5. TAXOL [Concomitant]
     Active Substance: PACLITAXEL
     Indication: Breast cancer metastatic
     Dates: start: 2015, end: 2016

REACTIONS (1)
  - Fatigue [Unknown]
